FAERS Safety Report 6169467-5 (Version None)
Quarter: 2009Q2

REPORT INFORMATION
  Report Type: 
  Country: None (occurrence: None)
  Receive Date: 20090428
  Receipt Date: 20090424
  Transmission Date: 20091009
  Serious: Yes (Death, Hospitalization)
  Sender: FDA-Public Use
  Company Number: PHHO2006KR11562

PATIENT
  Sex: Male
  Weight: 104 kg

DRUGS (4)
  1. AMN107 AMN+CAP [Suspect]
     Indication: CHRONIC MYELOID LEUKAEMIA
     Dosage: 800 MG, DAILY
     Route: 048
     Dates: start: 20060707, end: 20060714
  2. AMN107 AMN+CAP [Suspect]
     Dosage: UNK, NO TREATMENT
     Dates: start: 20060715
  3. ALOPURINOL [Concomitant]
  4. ANALGESICS [Concomitant]

REACTIONS (8)
  - ABDOMINAL PAIN [None]
  - CEREBRAL HAEMORRHAGE [None]
  - DEAFNESS [None]
  - ELECTROCARDIOGRAM QT PROLONGED [None]
  - LEUKOCYTOSIS [None]
  - NAUSEA [None]
  - RENAL FAILURE ACUTE [None]
  - VOMITING [None]
